FAERS Safety Report 16188582 (Version 1)
Quarter: 2019Q2

REPORT INFORMATION
  Report Type: Spontaneous
  Country: GB (occurrence: GB)
  Receive Date: 20190412
  Receipt Date: 20190412
  Transmission Date: 20190711
  Serious: Yes (Disabling, Other)
  Sender: FDA-Public Use
  Company Number: GB-TEVA-2019-GB-1034881

PATIENT
  Age: 58 Year
  Sex: Female
  Weight: 58.06 kg

DRUGS (7)
  1. DULOXETINE. [Suspect]
     Active Substance: DULOXETINE
     Dosage: TITRATED SLOWLY. 20/0MG. INCREASES DONE OVER 2-3 WEEKS
     Route: 048
     Dates: start: 20180420
  2. LEVOTHYROXINE. [Concomitant]
     Active Substance: LEVOTHYROXINE
  3. DULOXETINE. [Suspect]
     Active Substance: DULOXETINE
     Dosage: 30 MILLIGRAM DAILY; NIGHT. TITRATED SLOWLY. INCREASES DONE OVER 2-3 WEEKS.
     Route: 048
     Dates: end: 20180829
  4. LORAZEPAM. [Concomitant]
     Active Substance: LORAZEPAM
     Indication: RESTLESSNESS
     Dosage: 1/2 TO 1 UP TO 3 TIMES PER WEEK TO CALM AND AID REST
  5. DULOXETINE. [Suspect]
     Active Substance: DULOXETINE
     Indication: DEPRESSION
     Dosage: TITRATED SLOWLY. INCREASES DONE OVER 2-3 WEEKS.
     Route: 048
  6. DULOXETINE. [Suspect]
     Active Substance: DULOXETINE
     Dosage: TITRATED SLOWLY. 20/30MG.? INCREASES DONE OVER 2-3 WEEKS.
     Route: 048
  7. ZOPICLONE [Concomitant]
     Active Substance: ZOPICLONE
     Indication: SLEEP DISORDER
     Dosage: STOPPED BEFORE STARTING DULOXETINE
     Dates: start: 201804

REACTIONS (19)
  - Intentional self-injury [Recovering/Resolving]
  - Thinking abnormal [Not Recovered/Not Resolved]
  - Paraesthesia [Not Recovered/Not Resolved]
  - Confusional state [Not Recovered/Not Resolved]
  - Seizure [Not Recovered/Not Resolved]
  - Dyskinesia [Recovering/Resolving]
  - Depressed mood [Not Recovered/Not Resolved]
  - Myalgia [Unknown]
  - Tremor [Not Recovered/Not Resolved]
  - Athetosis [Recovering/Resolving]
  - Dysarthria [Not Recovered/Not Resolved]
  - Suicidal ideation [Recovering/Resolving]
  - Fatigue [Unknown]
  - Drop attacks [Not Recovered/Not Resolved]
  - Restlessness [Recovering/Resolving]
  - Agitation [Recovering/Resolving]
  - Dissociation [Recovering/Resolving]
  - Emotional distress [Recovering/Resolving]
  - Aggression [Recovering/Resolving]

NARRATIVE: CASE EVENT DATE: 201806
